FAERS Safety Report 16500011 (Version 2)
Quarter: 2019Q3

REPORT INFORMATION
  Report Type: Spontaneous
  Country: DE (occurrence: DE)
  Receive Date: 20190701
  Receipt Date: 20190920
  Transmission Date: 20191004
  Serious: Yes (Hospitalization)
  Sender: FDA-Public Use
  Company Number: DE-TEVA-2019-DE-1070864

PATIENT
  Age: 43 Year
  Sex: Female
  Weight: 100 kg

DRUGS (13)
  1. PANTOPRAZOL [Concomitant]
     Active Substance: PANTOPRAZOLE SODIUM
  2. DILTIAZEM. [Concomitant]
     Active Substance: DILTIAZEM
     Dosage: 60MG 1/2-0-1/2
  3. FLUTICASON/SALMETEROL [Concomitant]
     Indication: ASTHMA
     Route: 055
  4. HYDROCORTISON [Concomitant]
     Active Substance: HYDROCORTISONE
     Indication: ADRENAL INSUFFICIENCY
     Dosage: WAS INCREASED TO 20MG / DAY
     Route: 048
     Dates: start: 2011
  5. BUDESONIDE. [Concomitant]
     Active Substance: BUDESONIDE
  6. BENRALIZUMAB. [Suspect]
     Active Substance: BENRALIZUMAB
     Indication: ASTHMA
     Route: 058
     Dates: start: 20190204, end: 20190416
  7. MONTELUKAST [Concomitant]
     Active Substance: MONTELUKAST SODIUM
     Indication: ASTHMA
     Dosage: 0-0-1
     Route: 048
     Dates: start: 201609
  8. BERODUAL [Concomitant]
     Active Substance: FENOTEROL HYDROBROMIDE\IPRATROPIUM BROMIDE
     Dosage: IF NECESSARY, CURRENTLY 1X / WEEK
  9. VITAMIN D [Concomitant]
     Active Substance: VITAMIN D NOS
  10. FORMOTEROL [Concomitant]
     Active Substance: FORMOTEROL
  11. SUMATRIPTAN. [Suspect]
     Active Substance: SUMATRIPTAN
     Indication: MIGRAINE
     Route: 048
  12. SPIRIVA [Concomitant]
     Active Substance: TIOTROPIUM BROMIDE MONOHYDRATE
     Indication: ASTHMA
     Route: 055
  13. FENOTEROL [Concomitant]
     Active Substance: FENOTEROL

REACTIONS (3)
  - Arteriospasm coronary [Recovering/Resolving]
  - Electrocardiogram ST segment elevation [Recovering/Resolving]
  - Angina pectoris [Recovering/Resolving]

NARRATIVE: CASE EVENT DATE: 20190503
